FAERS Safety Report 15461835 (Version 2)
Quarter: 2019Q1

REPORT INFORMATION
  Report Type: Spontaneous
  Country: BR (occurrence: BR)
  Receive Date: 20181003
  Receipt Date: 20190123
  Transmission Date: 20190417
  Serious: Yes (Other)
  Sender: FDA-Public Use
  Company Number: BR-ANIPHARMA-2018-BR-000031

PATIENT
  Age: 65 Year
  Sex: Male
  Weight: 124 kg

DRUGS (16)
  1. SOMALGIN CARDIO [Suspect]
     Active Substance: ASPIRIN\DIHYDROXYALUMINUM AMINOACETATE ANHYDROUS\MAGNESIUM CARBONATE
     Dosage: 100MG
     Route: 048
     Dates: start: 2011
  2. MYRBETRIQ [Concomitant]
     Active Substance: MIRABEGRON
     Dosage: OD/AT NIGHT
     Route: 048
  3. FLUIMUCIL [Concomitant]
     Active Substance: ACETYLCYSTEINE
     Dosage: TWO TIMES A DAY
     Route: 048
  4. VEZOMNI [Concomitant]
     Dates: start: 2018
  5. SYMBICORT [Suspect]
     Active Substance: BUDESONIDE\FORMOTEROL FUMARATE DIHYDRATE
     Dosage: 12/400 MCG UNKNOWN TWO TIMES A DAY
     Route: 055
     Dates: start: 2016
  6. AMLODIPINE [Concomitant]
     Active Substance: AMLODIPINE BESYLATE
     Dosage: 5 MG DAILY
     Route: 048
     Dates: start: 201411
  7. ZANIDIP [Concomitant]
     Active Substance: LERCANIDIPINE HYDROCHLORIDE
     Dosage: EVERY DAY
     Route: 048
  8. ATACAND HCT [Suspect]
     Active Substance: CANDESARTAN CILEXETIL\HYDROCHLOROTHIAZIDE
     Indication: HYPERTENSION
     Dosage: 16/12.5MG DAILY
     Route: 048
     Dates: start: 2013
  9. ATACAND [Suspect]
     Active Substance: CANDESARTAN CILEXETIL
     Indication: HYPERTENSION
     Dosage: 16MG DAILY
     Route: 048
     Dates: start: 2011, end: 2013
  10. SELOZOK [Suspect]
     Active Substance: METOPROLOL SUCCINATE
     Dosage: 50 MG DAILY (2011-JUN2014) / 50 MG BID (JUN2014-)
     Route: 048
     Dates: start: 2011
  11. CRESTOR [Suspect]
     Active Substance: ROSUVASTATIN CALCIUM
     Dosage: 40 MG DAILY / 20 MG DAILY
     Route: 048
  12. GLIFAGE [Suspect]
     Active Substance: METFORMIN HYDROCHLORIDE
     Dosage: 500 MG HS
     Route: 048
  13. ESOMEPRAZOLE. [Concomitant]
     Active Substance: ESOMEPRAZOLE MAGNESIUM
     Dosage: EVERY DAY
     Route: 048
     Dates: start: 201808
  14. ZYLORIC [Concomitant]
     Active Substance: ALLOPURINOL
     Dosage: OD/MORNING
     Route: 048
  15. SECOTEX [Concomitant]
     Active Substance: TAMSULOSIN
     Dosage: 0.4 MG DAILY
     Route: 048
  16. RETEMIC [Concomitant]
     Active Substance: OXYBUTYNIN CHLORIDE
     Dosage: 5 MG DAILY
     Route: 048

REACTIONS (15)
  - Dizziness [Recovered/Resolved]
  - Gastric mucosal lesion [Unknown]
  - Syncope [Unknown]
  - Blood pressure increased [Unknown]
  - Blood pressure inadequately controlled [Recovered/Resolved]
  - Malaise [Recovered/Resolved]
  - Fall [Unknown]
  - Head injury [Recovered/Resolved]
  - Haematoma [Recovered/Resolved]
  - Groin pain [Recovered/Resolved]
  - Dyspepsia [Unknown]
  - Drug ineffective [Unknown]
  - Palpitations [Recovered/Resolved]
  - Tongue haemorrhage [Unknown]
  - Speech disorder [Recovered/Resolved]

NARRATIVE: CASE EVENT DATE: 20120612
